FAERS Safety Report 19186017 (Version 1)
Quarter: 2021Q2

REPORT INFORMATION
  Report Type: Spontaneous
  Country: US (occurrence: US)
  Receive Date: 20210427
  Receipt Date: 20210427
  Transmission Date: 20210717
  Serious: No
  Sender: FDA-Public Use
  Company Number: US-ORGANON-2011USA007061

PATIENT
  Sex: Female

DRUGS (3)
  1. ASMANEX [Suspect]
     Active Substance: MOMETASONE FUROATE
     Dosage: 2 PUFFS, ONCE DAILY
     Dates: start: 20210403, end: 202104
  2. ASMANEX [Suspect]
     Active Substance: MOMETASONE FUROATE
     Dosage: UNK
  3. ASMANEX [Suspect]
     Active Substance: MOMETASONE FUROATE
     Dosage: 2 PUFFS ONCE DAILY
     Dates: start: 20201021

REACTIONS (7)
  - Poor quality device used [Unknown]
  - No adverse event [Unknown]
  - Device malfunction [Unknown]
  - Poor quality device used [Unknown]
  - Device malfunction [Unknown]
  - Poor quality device used [Unknown]
  - Device malfunction [Unknown]

NARRATIVE: CASE EVENT DATE: 20201106
